FAERS Safety Report 26109997 (Version 1)
Quarter: 2025Q4

REPORT INFORMATION
  Report Type: Spontaneous
  Country: CN (occurrence: CN)
  Receive Date: 20251201
  Receipt Date: 20251201
  Transmission Date: 20260118
  Serious: Yes (Other)
  Sender: JOHNSON AND JOHNSON
  Company Number: CN-JNJFOC-20251173338

PATIENT
  Age: 19 Year
  Sex: Male
  Weight: 92.0 kg

DRUGS (2)
  1. RISPERDAL [Suspect]
     Active Substance: RISPERIDONE
     Indication: Bipolar disorder
     Route: 048
     Dates: start: 20251101, end: 20251115
  2. RISPERDAL [Suspect]
     Active Substance: RISPERIDONE
     Indication: Mania

REACTIONS (4)
  - Petit mal epilepsy [Unknown]
  - Irritability [Recovering/Resolving]
  - Anxiety [Recovering/Resolving]
  - Ectropion [Recovering/Resolving]

NARRATIVE: CASE EVENT DATE: 20251110
